FAERS Safety Report 17396077 (Version 2)
Quarter: 2020Q2

REPORT INFORMATION
  Report Type: Spontaneous
  Country: US (occurrence: US)
  Receive Date: 20200210
  Receipt Date: 20200406
  Transmission Date: 20200713
  Serious: No
  Sender: FDA-Public Use
  Company Number: US-VERTEX PHARMACEUTICALS-2020-002172

PATIENT
  Age: 12 Year
  Sex: Male
  Weight: 33 kg

DRUGS (7)
  1. ALBUTEROL [SALBUTAMOL] [Concomitant]
     Active Substance: ALBUTEROL
     Dosage: UNK
  2. ENSURE [NUTRIENTS NOS] [Concomitant]
     Dosage: UNK
  3. ADVAIR HFA [Concomitant]
     Active Substance: FLUTICASONE PROPIONATE\SALMETEROL XINAFOATE
     Dosage: UNK
  4. CREON [Concomitant]
     Active Substance: PANCRELIPASE AMYLASE\PANCRELIPASE LIPASE\PANCRELIPASE PROTEASE
     Dosage: 12000
  5. PROAIR HFA [Concomitant]
     Active Substance: ALBUTEROL SULFATE
     Dosage: UNK
  6. TRIKAFTA [Suspect]
     Active Substance: ELEXACAFTOR\IVACAFTOR\TEZACAFTOR
     Indication: CYSTIC FIBROSIS
     Dosage: 100 MG ELEXACAFTOR/ 50 MG TEZACAFTOR/ 75 MG IVACAFTOR AM AND 150 MG IVACAFTOR PM, BID
     Route: 048
     Dates: start: 20200116
  7. DUOCAL [Concomitant]
     Dosage: UNK

REACTIONS (4)
  - Rash papular [Recovered/Resolved]
  - Weight increased [Unknown]
  - Inflammation [Unknown]
  - Pruritus [Unknown]

NARRATIVE: CASE EVENT DATE: 202001
